FAERS Safety Report 6741100-0 (Version None)
Quarter: 2010Q2

REPORT INFORMATION
  Report Type: 
  Country: None (occurrence: None)
  Receive Date: 20100526
  Receipt Date: 20100514
  Transmission Date: 20101027
  Serious: Yes (Other)
  Sender: FDA-Public Use
  Company Number: GB-JNJFOC-20100509212

PATIENT
  Sex: Female

DRUGS (3)
  1. REMICADE [Suspect]
     Indication: DRUG USE FOR UNKNOWN INDICATION
     Route: 042
  2. REMICADE [Suspect]
     Route: 042
  3. DEXAMETHASONE [Suspect]
     Indication: DRUG USE FOR UNKNOWN INDICATION

REACTIONS (4)
  - CYANOSIS [None]
  - ERYTHEMA [None]
  - INFUSION RELATED REACTION [None]
  - MALAISE [None]
